FAERS Safety Report 4956164-4 (Version None)
Quarter: 2006Q1

REPORT INFORMATION
  Report Type: 
  Country: None (occurrence: None)
  Receive Date: 20060322
  Receipt Date: 20060307
  Transmission Date: 20060701
  Serious: Yes (Other)
  Sender: FDA-Public Use
  Company Number: FACT0600144

PATIENT

DRUGS (2)
  1. FACTIVE [Suspect]
     Indication: RESPIRATORY TRACT INFECTION BACTERIAL
     Dates: start: 20060101, end: 20060101
  2. NOREPINEPHRINE BITARTRATE [Concomitant]

REACTIONS (1)
  - ANAPHYLACTIC REACTION [None]
